FAERS Safety Report 11072020 (Version 1)
Quarter: 2015Q2

REPORT INFORMATION
  Report Type: Spontaneous
  Country: US (occurrence: US)
  Receive Date: 20150428
  Receipt Date: 20150428
  Transmission Date: 20150821
  Serious: No
  Sender: FDA-Public Use
  Company Number: US-BAUSCH-BL-2015-002463

PATIENT
  Age: 74 Year
  Sex: Female
  Weight: 105.33 kg

DRUGS (4)
  1. AMLODIPINE [Concomitant]
     Active Substance: AMLODIPINE BESYLATE
  2. PERCOCET [Concomitant]
     Active Substance: ACETAMINOPHEN\OXYCODONE HYDROCHLORIDE
  3. LOTEMAX [Suspect]
     Active Substance: LOTEPREDNOL ETABONATE
     Indication: DRY EYE
     Route: 047
     Dates: start: 20150106
  4. CENTRUM [Concomitant]
     Active Substance: VITAMINS

REACTIONS (4)
  - Eye pain [Recovering/Resolving]
  - Eyelid margin crusting [Not Recovered/Not Resolved]
  - Product use issue [Recovering/Resolving]
  - Eye burns [Recovering/Resolving]

NARRATIVE: CASE EVENT DATE: 20150106
